FAERS Safety Report 9877697 (Version 3)
Quarter: 2014Q1

REPORT INFORMATION
  Report Type: Spontaneous
  Country: US (occurrence: None)
  Receive Date: 20140204
  Receipt Date: 20140311
  Transmission Date: 20141002
  Serious: Yes (Other)
  Sender: FDA-Public Use
  Company Number: AUR-APL-2014-00703

PATIENT
  Age: 59 Year
  Sex: Female
  Weight: 77.11 kg

DRUGS (4)
  1. DULOXETINE [Suspect]
     Indication: ANXIETY
     Dosage: 1 IN 1 D
     Route: 048
     Dates: start: 20131223, end: 20140120
  2. DULOXETINE [Suspect]
     Indication: DEPRESSION
     Dosage: 1 IN 1 D
     Route: 048
     Dates: start: 20131223, end: 20140120
  3. DULOXETINE [Suspect]
     Indication: POST-TRAUMATIC STRESS DISORDER
     Dosage: 1 IN 1 D
     Route: 048
     Dates: start: 20131223, end: 20140120
  4. XANAX ( ALPRAZOLAM) [Concomitant]

REACTIONS (8)
  - Product substitution issue [None]
  - Insomnia [None]
  - Suicidal ideation [None]
  - Anxiety [None]
  - Depression [None]
  - Drug ineffective [None]
  - Nervousness [None]
  - Negative thoughts [None]
